FAERS Safety Report 8055848-1 (Version None)
Quarter: 2012Q1

REPORT INFORMATION
  Report Type: 
  Country: None (occurrence: None)
  Receive Date: 20120119
  Receipt Date: 20120119
  Transmission Date: 20120608
  Serious: Yes (Other)
  Sender: FDA-Public Use
  Company Number: None

PATIENT
  Sex: Male

DRUGS (1)
  1. FORTEO [Suspect]
     Indication: OSTEOPOROSIS
     Dosage: 20MCG
     Route: 058
     Dates: start: 20110921, end: 20111215

REACTIONS (3)
  - PRURITUS [None]
  - RASH [None]
  - ERYTHEMA [None]
